FAERS Safety Report 24049204 (Version 2)
Quarter: 2024Q3

REPORT INFORMATION
  Report Type: Report from Study
  Country: IT (occurrence: IT)
  Receive Date: 20240704
  Receipt Date: 20240717
  Transmission Date: 20241016
  Serious: Yes (Death, Other)
  Sender: ABBVIE
  Company Number: IT-ABBVIE-5820262

PATIENT
  Age: 10 Year
  Sex: Male
  Weight: 40 kg

DRUGS (11)
  1. VENETOCLAX [Suspect]
     Active Substance: VENETOCLAX
     Indication: Acute myeloid leukaemia refractory
     Dosage: FREQUENCY TEXT: ONCE
     Route: 048
     Dates: start: 20240413, end: 20240420
  2. VENETOCLAX [Suspect]
     Active Substance: VENETOCLAX
     Indication: Acute myeloid leukaemia refractory
     Dosage: FREQUENCY TEXT: ONCE
     Route: 048
     Dates: start: 20240430, end: 20240505
  3. VENETOCLAX [Suspect]
     Active Substance: VENETOCLAX
     Indication: Acute myeloid leukaemia refractory
     Dosage: FREQUENCY TEXT: ONCE
     Route: 048
     Dates: start: 20240603, end: 20240605
  4. VENETOCLAX [Suspect]
     Active Substance: VENETOCLAX
     Indication: Acute myeloid leukaemia refractory
     Dosage: FREQUENCY TEXT: ONCE
     Route: 048
     Dates: start: 20240506, end: 20240510
  5. AMBISOME [Concomitant]
     Active Substance: AMPHOTERICIN B
     Indication: Fungal infection
     Dosage: 150 UNIT
     Route: 042
     Dates: start: 20240616
  6. MORPHINE COOPER [Concomitant]
     Indication: Pain
  7. MIDAZOLAM [Concomitant]
     Active Substance: MIDAZOLAM
     Indication: Sedative therapy
  8. TRANEXAMIC ACID [Concomitant]
     Active Substance: TRANEXAMIC ACID
     Indication: Thrombocytopenia
     Dosage: TIME INTERVAL: 0.33333333 DAYS: 500
     Route: 042
     Dates: start: 20240604
  9. MEROPENEM [Concomitant]
     Active Substance: MEROPENEM
     Indication: Bacterial sepsis
     Dosage: TIME INTERVAL: 0.33333333 DAYS: 2 GR
     Route: 042
     Dates: start: 20240616
  10. ACYCLOVIR [Concomitant]
     Active Substance: ACYCLOVIR
     Indication: Varicella zoster virus infection
     Dosage: TIME INTERVAL: 0.33333333 DAYS: 500 U
     Route: 042
     Dates: start: 20240616
  11. TARGOSID [Concomitant]
     Active Substance: TEICOPLANIN
     Indication: Bacterial sepsis
     Dosage: 400 MILLIGRAM
     Route: 042
     Dates: start: 20240616

REACTIONS (3)
  - Fungal infection [Fatal]
  - Acute myeloid leukaemia [Fatal]
  - Cardiac arrest [Fatal]

NARRATIVE: CASE EVENT DATE: 20240101
